FAERS Safety Report 5537390-2 (Version None)
Quarter: 2007Q4

REPORT INFORMATION
  Report Type: 
  Country: None (occurrence: None)
  Receive Date: 20071207
  Receipt Date: 20071204
  Transmission Date: 20080405
  Serious: Yes (Other)
  Sender: FDA-Public Use
  Company Number: B0481398A

PATIENT
  Age: 39 Year
  Sex: Male
  Weight: 70 kg

DRUGS (7)
  1. FOSAMPRENAVIR [Suspect]
     Indication: HIV INFECTION
     Dosage: 700MG TWICE PER DAY
     Route: 048
     Dates: start: 20070525, end: 20070907
  2. RITONAVIR [Suspect]
     Indication: HIV INFECTION
     Dosage: 100MG TWICE PER DAY
     Route: 048
     Dates: start: 20070525, end: 20070907
  3. KIVEXA [Suspect]
     Indication: HIV INFECTION
     Route: 048
     Dates: start: 20070525, end: 20070724
  4. CLARITIN [Concomitant]
  5. FLIXOVATE [Concomitant]
     Dates: end: 20070601
  6. DIPROSONE [Concomitant]
     Dates: end: 20070601
  7. TRUVADA [Concomitant]
     Indication: ANTIRETROVIRAL THERAPY
     Route: 048
     Dates: start: 20070725

REACTIONS (6)
  - DRUG HYPERSENSITIVITY [None]
  - MYALGIA [None]
  - PRURITUS [None]
  - PYREXIA [None]
  - RASH [None]
  - RASH MACULO-PAPULAR [None]
